FAERS Safety Report 6769415-0 (Version None)
Quarter: 2010Q2

REPORT INFORMATION
  Report Type: 
  Country: None (occurrence: None)
  Receive Date: 20100615
  Receipt Date: 20100614
  Transmission Date: 20101027
  Serious: Yes (Hospitalization)
  Sender: FDA-Public Use
  Company Number: US-B.I. PHARMACEUTICALS,INC./RIDGEFIELD-2009-BP-12503BP

PATIENT
  Sex: Female

DRUGS (11)
  1. SPIRIVA [Suspect]
     Indication: ASTHMA
     Dosage: 18 MCG
     Route: 055
     Dates: start: 20060101
  2. ADVAIR DISKUS 100/50 [Concomitant]
     Indication: ASTHMA
  3. NORVASC [Concomitant]
     Indication: HYPERTENSION
  4. AVAPRO [Concomitant]
     Indication: HYPERTENSION
  5. HYTRIN [Concomitant]
     Indication: HYPERTENSION
  6. AMARYL [Concomitant]
     Indication: DIABETES MELLITUS
  7. FOSAMAX [Concomitant]
     Indication: PROPHYLAXIS
  8. SIMVASTATIN [Concomitant]
     Indication: BLOOD CHOLESTEROL INCREASED
  9. METFORMIN HCL [Concomitant]
     Indication: DIABETES MELLITUS
  10. FUROSEMIDE [Concomitant]
     Indication: HYPERTENSION
  11. FLONASE [Concomitant]
     Indication: SEASONAL ALLERGY

REACTIONS (4)
  - CORONARY ARTERY OCCLUSION [None]
  - COUGH [None]
  - HEART RATE IRREGULAR [None]
  - WHEEZING [None]
